FAERS Safety Report 4288905-6 (Version None)
Quarter: 2004Q1

REPORT INFORMATION
  Report Type: 
  Country: None (occurrence: None)
  Receive Date: 20040209
  Receipt Date: 20040209
  Transmission Date: 20041129
  Serious: Yes (Other)
  Sender: FDA-Public Use
  Company Number: None

PATIENT
  Age: 14 Year
  Sex: Male
  Weight: 65.7716 kg

DRUGS (3)
  1. EFFEXOR XR [Suspect]
     Indication: ATTENTION DEFICIT/HYPERACTIVITY DISORDER
     Dosage: 1 CAPSUL FOR 7 DAYS ORAL; 2 CAPSUL AFTER 7 DA ORAL
     Route: 048
     Dates: start: 20040128, end: 20040204
  2. EFFEXOR XR [Suspect]
     Indication: DEPRESSION
     Dosage: 1 CAPSUL FOR 7 DAYS ORAL; 2 CAPSUL AFTER 7 DA ORAL
     Route: 048
     Dates: start: 20040128, end: 20040204
  3. ... [Concomitant]

REACTIONS (5)
  - ABNORMAL BEHAVIOUR [None]
  - AGGRESSION [None]
  - HOMICIDAL IDEATION [None]
  - LEGAL PROBLEM [None]
  - SUICIDAL IDEATION [None]
